FAERS Safety Report 4868375-7 (Version None)
Quarter: 2005Q4

REPORT INFORMATION
  Report Type: 
  Country: None (occurrence: None)
  Receive Date: 20051229
  Receipt Date: 20051222
  Transmission Date: 20060501
  Serious: Yes (Other)
  Sender: FDA-Public Use
  Company Number: CA-GLAXOSMITHKLINE-A0586894A

PATIENT
  Age: 50 Year
  Sex: Female

DRUGS (2)
  1. AVANDAMET [Suspect]
     Indication: DIABETES MELLITUS
     Dosage: 1TAB TWICE PER DAY
     Route: 048
     Dates: start: 20050401, end: 20051201
  2. INSULIN [Concomitant]
     Indication: DIABETES MELLITUS
     Dates: start: 20051101

REACTIONS (9)
  - BLOOD PRESSURE INCREASED [None]
  - CARDIOVASCULAR DISORDER [None]
  - FLUID RETENTION [None]
  - HUNGER [None]
  - MUSCLE SPASMS [None]
  - RETINAL DEGENERATION [None]
  - RETINOPATHY HAEMORRHAGIC [None]
  - SKIN DISCOLOURATION [None]
  - WEIGHT INCREASED [None]
